FAERS Safety Report 6417267-0 (Version None)
Quarter: 2009Q4

REPORT INFORMATION
  Report Type: 
  Country: None (occurrence: None)
  Receive Date: 20091028
  Receipt Date: 20091014
  Transmission Date: 20100525
  Serious: Yes (Other)
  Sender: FDA-Public Use
  Company Number: PHHY2009JP44864

PATIENT
  Age: 46 Year
  Sex: Male

DRUGS (3)
  1. TASIGNA [Suspect]
     Dosage: 400 MG, UNK
     Route: 048
     Dates: start: 20060901
  2. TASIGNA [Suspect]
     Dosage: 400 MG, UNK
     Route: 048
  3. TASIGNA [Suspect]
     Dosage: 400 MG, UNK
     Route: 048

REACTIONS (3)
  - LIVER DISORDER [None]
  - PLATELET COUNT DECREASED [None]
  - RASH [None]
